FAERS Safety Report 15609226 (Version 1)
Quarter: 2018Q4

REPORT INFORMATION
  Report Type: Spontaneous
  Country: US (occurrence: US)
  Receive Date: 20181112
  Receipt Date: 20181112
  Transmission Date: 20190205
  Serious: No
  Sender: FDA-Public Use
  Company Number: US-MIST-TIR-2018-0861

PATIENT
  Age: 58 Year
  Sex: Female

DRUGS (4)
  1. TIROSINT [Suspect]
     Active Substance: LEVOTHYROXINE SODIUM
     Indication: HYPOTHYROIDISM
     Dosage: 112MCG DAILY
     Route: 048
  2. TIROSINT [Suspect]
     Active Substance: LEVOTHYROXINE SODIUM
     Dosage: TWO 112MCG CAPSULES
     Route: 048
     Dates: start: 20180812
  3. TIROSINT [Suspect]
     Active Substance: LEVOTHYROXINE SODIUM
     Indication: HYPOTHYROIDISM
     Dosage: 112MCG DAILY 6 DAYS PER WEEK AND 100MCG ONE DAY PER WEEK
     Route: 048
     Dates: start: 2018
  4. TIROSINT [Suspect]
     Active Substance: LEVOTHYROXINE SODIUM
     Dosage: 112MCG DAILY 6 DAYS PER WEEK AND 100MCG ONE DAY PER WEEK
     Route: 048
     Dates: start: 2018

REACTIONS (4)
  - Drug level above therapeutic [Unknown]
  - Incorrect dose administered [Unknown]
  - Irritability [Unknown]
  - Feeling jittery [Unknown]

NARRATIVE: CASE EVENT DATE: 2018
